FAERS Safety Report 4540994-7 (Version None)
Quarter: 2004Q4

REPORT INFORMATION
  Report Type: 
  Country: None (occurrence: None)
  Receive Date: 20041228
  Receipt Date: 20041215
  Transmission Date: 20050328
  Serious: Yes (Life-Threatening, Hospitalization)
  Sender: FDA-Public Use
  Company Number: 2004117023

PATIENT
  Age: 67 Year
  Sex: Female
  Weight: 72.5755 kg

DRUGS (2)
  1. BEXTRA [Suspect]
     Indication: OSTEOARTHRITIS
     Dosage: 10 MG (10 MG, 1 IN 1 D)
     Dates: start: 20040501
  2. NAPROXEN SODIUM [Suspect]
     Indication: PAIN

REACTIONS (8)
  - BACK PAIN [None]
  - BLOOD GLUCOSE INCREASED [None]
  - EXTRADURAL HAEMATOMA [None]
  - HAEMATOCRIT DECREASED [None]
  - HAEMOGLOBIN DECREASED [None]
  - NECK PAIN [None]
  - PCO2 DECREASED [None]
  - RADICULOPATHY [None]
